FAERS Safety Report 6294708-3 (Version None)
Quarter: 2009Q3

REPORT INFORMATION
  Report Type: 
  Country: None (occurrence: None)
  Receive Date: 20090803
  Receipt Date: 20090724
  Transmission Date: 20100115
  Serious: Yes (Other)
  Sender: FDA-Public Use
  Company Number: B0582824A

PATIENT
  Sex: Male
  Weight: 58 kg

DRUGS (8)
  1. ATRIANCE [Suspect]
     Dosage: 650MGM2 PER DAY
     Route: 042
  2. NEXIUM [Concomitant]
     Dosage: 40MG PER DAY
     Route: 048
  3. HYDROCORTISONE [Concomitant]
     Dosage: 10MG TWICE PER DAY
     Route: 048
  4. LAROXYL [Concomitant]
     Indication: SLEEP DISORDER
     Dosage: 20DROP PER DAY
     Route: 048
  5. BACTRIM [Concomitant]
     Dosage: 800MG THREE TIMES PER WEEK
     Route: 048
  6. TOPALGIC ( FRANCE ) [Concomitant]
     Dosage: 50MG AS REQUIRED
     Route: 048
  7. AMOXICILLIN TRIHYDRATE [Concomitant]
     Indication: PROPHYLAXIS AGAINST TRANSPLANT REJECTION
     Dosage: 500MG PER DAY
     Route: 048
  8. PENTACARINAT [Concomitant]
     Dosage: 1NEB EVERY 3 WEEKS
     Route: 055

REACTIONS (6)
  - CHOLESTASIS [None]
  - GAMMA-GLUTAMYLTRANSFERASE INCREASED [None]
  - HEPATOCELLULAR INJURY [None]
  - JAUNDICE [None]
  - NEUROPATHY PERIPHERAL [None]
  - OCULAR ICTERUS [None]
